FAERS Safety Report 11424384 (Version 3)
Quarter: 2016Q1

REPORT INFORMATION
  Report Type: Spontaneous
  Country: BR (occurrence: BR)
  Receive Date: 20150827
  Receipt Date: 20160128
  Transmission Date: 20160525
  Serious: Yes (Other)
  Sender: FDA-Public Use
  Company Number: BR-PFIZER INC-2015280491

PATIENT
  Age: 80 Year
  Sex: Female
  Weight: 95 kg

DRUGS (2)
  1. DOSTINEX [Suspect]
     Active Substance: CABERGOLINE
     Indication: BLOOD PROLACTIN INCREASED
     Dosage: 0.5 MG, WEEKLY
     Route: 048
     Dates: start: 2014, end: 2014
  2. DOSTINEX [Suspect]
     Active Substance: CABERGOLINE
     Indication: ADENOMA BENIGN
     Dosage: 0.5 DF, 2X/WEEK
     Route: 048

REACTIONS (1)
  - Pulmonary embolism [Unknown]
